FAERS Safety Report 9758602 (Version 1)
Quarter: 2013Q4

REPORT INFORMATION
  Report Type: Spontaneous
  Country: US (occurrence: None)
  Receive Date: 20131216
  Receipt Date: 20131216
  Transmission Date: 20140711
  Serious: Yes (Other)
  Sender: FDA-Public Use
  Company Number: US-2012-10758

PATIENT
  Sex: Male

DRUGS (1)
  1. SAMSCA (TOLVAPTAN) TABLET [Suspect]
     Indication: HYPONATRAEMIA
     Dosage: 15 MG MILLIGRAM(S), DAILY DOSE, ORAL

REACTIONS (1)
  - Rapid correction of hyponatraemia [None]
